FAERS Safety Report 11191421 (Version 2)
Quarter: 2015Q3

REPORT INFORMATION
  Report Type: Spontaneous
  Country: US (occurrence: US)
  Receive Date: 20150616
  Receipt Date: 20150817
  Transmission Date: 20151125
  Serious: No
  Sender: FDA-Public Use
  Company Number: US-LEO PHARMA-234998

PATIENT
  Age: 101 Year
  Sex: Female

DRUGS (1)
  1. PICATO [Suspect]
     Active Substance: INGENOL MEBUTATE
     Indication: ACTINIC KERATOSIS
     Dates: start: 20150604, end: 20150606

REACTIONS (8)
  - Erythema [Recovered/Resolved]
  - Application site pain [Recovered/Resolved]
  - Application site erythema [Recovering/Resolving]
  - Lip swelling [Recovered/Resolved]
  - Application site discharge [Recovered/Resolved]
  - Application site reaction [Recovered/Resolved]
  - Application site vesicles [Recovered/Resolved]
  - Application site irritation [Recovering/Resolving]

NARRATIVE: CASE EVENT DATE: 20150604
